FAERS Safety Report 6209377-8 (Version None)
Quarter: 2009Q2

REPORT INFORMATION
  Report Type: 
  Country: None (occurrence: None)
  Receive Date: 20090529
  Receipt Date: 20090519
  Transmission Date: 20091009
  Serious: Yes (Other)
  Sender: FDA-Public Use
  Company Number: PHHY2009BR20539

PATIENT
  Age: 51 Year
  Sex: Female
  Weight: 74 kg

DRUGS (2)
  1. VOLTAREN [Suspect]
     Indication: PAIN
     Dosage: 50 MG, UNK
     Route: 054
     Dates: end: 20090518
  2. VOLTAREN [Suspect]
     Indication: INFLAMMATION

REACTIONS (2)
  - PAIN [None]
  - SWELLING [None]
